FAERS Safety Report 6502929-7 (Version None)
Quarter: 2009Q4

REPORT INFORMATION
  Report Type: 
  Country: None (occurrence: None)
  Receive Date: 20091201
  Receipt Date: 20090106
  Transmission Date: 20100525
  Serious: Yes (Other)
  Sender: FDA-Public Use
  Company Number: 039804

PATIENT
  Sex: Female

DRUGS (4)
  1. ESTRACE [Suspect]
     Dosage: ORAL
     Route: 048
     Dates: start: 19990101, end: 20070101
  2. MEDROXYPROGESTERONE [Suspect]
     Dosage: ORAL
     Route: 048
     Dates: start: 19900101, end: 20070101
  3. PREMARIN [Suspect]
     Dosage: ORAL
     Route: 048
     Dates: start: 19900101, end: 20070101
  4. PROVERA [Suspect]
     Dosage: ORAL
     Route: 048
     Dates: start: 19900101, end: 20070101

REACTIONS (1)
  - BREAST CANCER [None]
